FAERS Safety Report 6688606-0 (Version None)
Quarter: 2010Q2

REPORT INFORMATION
  Report Type: 
  Country: None (occurrence: None)
  Receive Date: 20100420
  Receipt Date: 20100408
  Transmission Date: 20101027
  Serious: Yes (Hospitalization)
  Sender: FDA-Public Use
  Company Number: GB-ELI_LILLY_AND_COMPANY-GB201002004095

PATIENT
  Sex: Female
  Weight: 57 kg

DRUGS (5)
  1. BYETTA [Suspect]
     Indication: WEIGHT DECREASED
     Dosage: 5 UG, 2/D
     Route: 065
     Dates: start: 20100201, end: 20100204
  2. GLICLAZIDE [Concomitant]
     Indication: DIABETES MELLITUS
     Dosage: 80 MG, DAILY (1/D)
     Route: 048
  3. METFORMIN HCL [Concomitant]
     Indication: DIABETES MELLITUS
     Dosage: 1 G, 2/D
     Route: 048
  4. ATORVASTATIN [Concomitant]
     Dosage: 20 MG, UNKNOWN
     Route: 048
  5. RAMIPRIL [Concomitant]
     Dosage: 1.25 MG, UNKNOWN
     Route: 048

REACTIONS (6)
  - ASTHENIA [None]
  - DIZZINESS [None]
  - GASTRIC DISORDER [None]
  - NAUSEA [None]
  - OFF LABEL USE [None]
  - VOMITING [None]
